FAERS Safety Report 4435049-6 (Version None)
Quarter: 2004Q3

REPORT INFORMATION
  Report Type: 
  Country: None (occurrence: None)
  Receive Date: 20040826
  Receipt Date: 20040826
  Transmission Date: 20050211
  Serious: Yes (Other)
  Sender: FDA-Public Use
  Company Number: None

PATIENT
  Age: 81 Year
  Sex: Female
  Weight: 54.4316 kg

DRUGS (15)
  1. WARFARIN SODIUM [Suspect]
     Indication: ATRIAL FIBRILLATION
     Dosage: 2.5 MG PO Q24 H 3 MG PO Q 24 H
     Route: 048
  2. JANTOVEN [Suspect]
     Indication: ATRIAL FIBRILLATION
     Dosage: 2.5 MG PO Q24 H 3 MG PO Q 24H
     Route: 048
  3. CELEXA [Concomitant]
  4. CARDIZEM CD [Concomitant]
  5. ZESTRIL [Concomitant]
  6. PRILOSEC [Concomitant]
  7. IRON [Concomitant]
  8. MAGOX [Concomitant]
  9. NEURONTIN [Concomitant]
  10. TRAZADOINE [Concomitant]
  11. ZYPREXA [Concomitant]
  12. LAC DOSE [Concomitant]
  13. ATIVAN [Concomitant]
  14. TUMS [Concomitant]
  15. THORAZINE [Concomitant]

REACTIONS (1)
  - INTERNATIONAL NORMALISED RATIO ABNORMAL [None]
